FAERS Safety Report 24739785 (Version 1)
Quarter: 2024Q4

REPORT INFORMATION
  Report Type: Spontaneous
  Country: US (occurrence: US)
  Receive Date: 20241216
  Receipt Date: 20241216
  Transmission Date: 20250114
  Serious: No
  Sender: SANOFI AVENTIS
  Company Number: US-SA-2024SA369877

PATIENT
  Age: 48 Year
  Sex: Female

DRUGS (3)
  1. DUPIXENT [Suspect]
     Active Substance: DUPILUMAB
     Dosage: 300 MG, QOW
     Route: 058
  2. IRON [Concomitant]
     Active Substance: IRON
     Dosage: UNK
  3. B12 ACTIVE [Concomitant]
     Dosage: UNK

REACTIONS (3)
  - Condition aggravated [Unknown]
  - Discomfort [Unknown]
  - Rash [Unknown]

NARRATIVE: CASE EVENT DATE: 20241101
